FAERS Safety Report 4982700-8 (Version None)
Quarter: 2006Q2

REPORT INFORMATION
  Report Type: 
  Country: None (occurrence: None)
  Receive Date: 20060425
  Receipt Date: 20060103
  Transmission Date: 20061013
  Serious: Yes (Death, Hospitalization)
  Sender: FDA-Public Use
  Company Number: US-MERCK-0601USA00281

PATIENT
  Age: 85 Year
  Sex: Male
  Weight: 63 kg

DRUGS (6)
  1. VIOXX [Suspect]
     Indication: ARTHRALGIA
     Route: 048
     Dates: start: 20010904, end: 20010909
  2. VIOXX [Suspect]
     Route: 048
     Dates: start: 20010910
  3. VIOXX [Suspect]
     Route: 048
     Dates: start: 20020101, end: 20040930
  4. VIOXX [Suspect]
     Indication: ARTHRITIS
     Route: 048
     Dates: start: 20010904, end: 20010909
  5. VIOXX [Suspect]
     Route: 048
     Dates: start: 20010910
  6. VIOXX [Suspect]
     Route: 048
     Dates: start: 20020101, end: 20040930

REACTIONS (18)
  - ASTHENIA [None]
  - BLOOD POTASSIUM INCREASED [None]
  - BLOOD TRIGLYCERIDES INCREASED [None]
  - CEREBRAL ATROPHY [None]
  - CEREBRAL ISCHAEMIA [None]
  - CHRONIC OBSTRUCTIVE PULMONARY DISEASE [None]
  - DRUG INEFFECTIVE [None]
  - HISTOPLASMOSIS [None]
  - LUNG INFILTRATION [None]
  - LUNG NEOPLASM [None]
  - PNEUMONIA [None]
  - PNEUMONIA ASPIRATION [None]
  - PNEUMOTHORAX [None]
  - PULMONARY FIBROSIS [None]
  - PULMONARY MYCOSIS [None]
  - SYNOVIAL CYST [None]
  - TRANSIENT ISCHAEMIC ATTACK [None]
  - UPPER RESPIRATORY FUNGAL INFECTION [None]
